FAERS Safety Report 6375192-8 (Version None)
Quarter: 2009Q3

REPORT INFORMATION
  Report Type: 
  Country: None (occurrence: None)
  Receive Date: 20090922
  Receipt Date: 20090922
  Transmission Date: 20100115
  Serious: Yes (Other)
  Sender: FDA-Public Use
  Company Number: None

PATIENT
  Age: 67 Year
  Sex: Male

DRUGS (10)
  1. ACETAZOLAMIDE [Suspect]
     Indication: NORMAL PRESSURE HYDROCEPHALUS
     Dosage: 250 MG QAM OROPHARINGEAL
     Route: 049
     Dates: start: 20090713, end: 20090819
  2. MULTIVITAMIN WITH MINERALS [Concomitant]
  3. LEVOTHYROXINE SODIUM [Concomitant]
  4. SIMVASTATIN [Concomitant]
  5. DIVALPROEX SODIUM [Concomitant]
  6. LISINOPRIL [Concomitant]
  7. DONEPEZIL HCL [Concomitant]
  8. SERTRALINE HCL [Concomitant]
  9. CARBIDOPA-LEVODOPA [Concomitant]
  10. PALIPERIDONE [Concomitant]

REACTIONS (10)
  - ASTHENIA [None]
  - BLOOD CHLORIDE INCREASED [None]
  - BLOOD UREA INCREASED [None]
  - CONFUSIONAL STATE [None]
  - DECREASED APPETITE [None]
  - DEPRESSIVE SYMPTOM [None]
  - LETHARGY [None]
  - METABOLIC ACIDOSIS [None]
  - PARKINSON'S DISEASE [None]
  - PCO2 DECREASED [None]
